FAERS Safety Report 8587322-8 (Version None)
Quarter: 2012Q3

REPORT INFORMATION
  Report Type: 
  Country: None (occurrence: None)
  Receive Date: 20120810
  Receipt Date: 20120201
  Transmission Date: 20120928
  Serious: No
  Sender: FDA-Public Use
  Company Number: US-ASTRAZENECA-2012SE07189

PATIENT
  Age: 44 Year
  Sex: Female
  Weight: 60.8 kg

DRUGS (7)
  1. HYDROCODONE [Concomitant]
     Indication: BREAST CANCER
  2. CARBOPLATIN [Concomitant]
     Indication: BREAST CANCER
  3. PAXIL [Concomitant]
     Indication: BREAST CANCER
  4. HERCEPTIN [Concomitant]
  5. ATEROL [Concomitant]
     Indication: BREAST CANCER
  6. TAXOTERE [Concomitant]
  7. ARIMIDEX [Suspect]
     Indication: BREAST CANCER
     Route: 048
     Dates: start: 20110131

REACTIONS (5)
  - HYPOAESTHESIA ORAL [None]
  - INFLAMMATION [None]
  - FEELING ABNORMAL [None]
  - INSOMNIA [None]
  - PARAESTHESIA ORAL [None]
